FAERS Safety Report 5125700-X (Version None)
Quarter: 2006Q3

REPORT INFORMATION
  Report Type: 
  Country: None (occurrence: None)
  Receive Date: 20060814
  Receipt Date: 20050729
  Transmission Date: 20061208
  Serious: Yes (Hospitalization)
  Sender: FDA-Public Use
  Company Number: PHEH2005US08488

PATIENT
  Sex: Female

DRUGS (1)
  1. VISUDYNE [Suspect]

REACTIONS (1)
  - INJECTION SITE EXTRAVASATION [None]
